FAERS Safety Report 13408402 (Version 1)
Quarter: 2017Q2

REPORT INFORMATION
  Report Type: Spontaneous
  Country: US (occurrence: US)
  Receive Date: 20170405
  Receipt Date: 20170405
  Transmission Date: 20170830
  Serious: Yes (Other)
  Sender: FDA-Public Use
  Company Number: None

PATIENT
  Age: 54 Year
  Sex: Female
  Weight: 53.1 kg

DRUGS (11)
  1. KETOPROFEN. [Concomitant]
     Active Substance: KETOPROFEN
  2. SAVELLA [Concomitant]
     Active Substance: MILNACIPRAN HYDROCHLORIDE
  3. ALPRAZOLAM. [Concomitant]
     Active Substance: ALPRAZOLAM
  4. LOSARTAN AND HYDROCHLOROTHIAZIDE [Concomitant]
     Active Substance: HYDROCHLOROTHIAZIDE\LOSARTAN POTASSIUM
  5. HYDROCODONE [Concomitant]
     Active Substance: HYDROCODONE
  6. LEVOFLOXACIN. [Suspect]
     Active Substance: LEVOFLOXACIN
     Indication: URINARY TRACT INFECTION
     Dosage: ?          QUANTITY:7 CAPSULE(S);?
     Route: 048
     Dates: start: 20161202, end: 20161209
  7. CALCIUM [Concomitant]
     Active Substance: CALCIUM
  8. VITAMIN D [Concomitant]
     Active Substance: CHOLECALCIFEROL
  9. TOPIRIMATE [Concomitant]
  10. SUMATRIPTAN. [Concomitant]
     Active Substance: SUMATRIPTAN
  11. CARISOPRODOL. [Concomitant]
     Active Substance: CARISOPRODOL

REACTIONS (2)
  - Arthralgia [None]
  - Tendon disorder [None]

NARRATIVE: CASE EVENT DATE: 20161204
